FAERS Safety Report 21856490 (Version 1)
Quarter: 2023Q1

REPORT INFORMATION
  Report Type: Report from Study
  Country: US (occurrence: US)
  Receive Date: 20230112
  Receipt Date: 20230112
  Transmission Date: 20230417
  Serious: No
  Sender: FDA-Public Use
  Company Number: US-ABBVIE-4268387

PATIENT
  Sex: Female

DRUGS (1)
  1. IMBRUVICA [Suspect]
     Active Substance: IBRUTINIB
     Indication: Follicular lymphoma
     Route: 048

REACTIONS (9)
  - Chronic kidney disease [Unknown]
  - Psoriatic arthropathy [Unknown]
  - Diabetes mellitus [Unknown]
  - Hypothyroidism [Unknown]
  - Osteoarthritis [Unknown]
  - Fibromyalgia [Unknown]
  - Crohn^s disease [Unknown]
  - Rheumatoid arthritis [Unknown]
  - Hepatic steatosis [Unknown]
